FAERS Safety Report 21799663 (Version 1)
Quarter: 2022Q4

REPORT INFORMATION
  Report Type: Spontaneous
  Country: JP (occurrence: None)
  Receive Date: 20221230
  Receipt Date: 20221230
  Transmission Date: 20230113
  Serious: Yes (Other)
  Sender: FDA-Public Use
  Company Number: 2022A416968

PATIENT
  Age: 88 Year
  Sex: Male

DRUGS (2)
  1. ONDEXXYA [Suspect]
     Active Substance: ANDEXANET ALFA
     Dosage: 860.0MG UNKNOWN
     Route: 042
  2. APIXABAN [Concomitant]
     Active Substance: APIXABAN
     Dosage: NUMBER OF SEPARATE DOSAGES UNKNOWN
     Route: 048

REACTIONS (3)
  - Cerebral infarction [Unknown]
  - Altered state of consciousness [Unknown]
  - Off label use [Unknown]
